FAERS Safety Report 15487071 (Version 1)
Quarter: 2018Q4

REPORT INFORMATION
  Report Type: Spontaneous
  Country: US (occurrence: US)
  Receive Date: 20181003
  Receipt Date: 20181003
  Transmission Date: 20190205
  Serious: Yes (Hospitalization)
  Sender: FDA-Public Use
  Company Number: None

PATIENT
  Age: 71 Year
  Sex: Male
  Weight: 93.89 kg

DRUGS (2)
  1. GLIPZIDE [Suspect]
     Active Substance: GLIPIZIDE
     Indication: DIABETES MELLITUS
     Route: 048
     Dates: start: 20180726, end: 20180731
  2. METOPROLOL. [Suspect]
     Active Substance: METOPROLOL
     Indication: HYPERTENSION
     Route: 048
     Dates: start: 20140307

REACTIONS (5)
  - Hallucination, visual [None]
  - Hypoglycaemia [None]
  - Dizziness [None]
  - Vision blurred [None]
  - Bradycardia [None]

NARRATIVE: CASE EVENT DATE: 20180731
